FAERS Safety Report 20595000 (Version 1)
Quarter: 2022Q1

REPORT INFORMATION
  Report Type: Spontaneous
  Country: FR (occurrence: FR)
  Receive Date: 20220315
  Receipt Date: 20220315
  Transmission Date: 20220423
  Serious: Yes (Other)
  Sender: FDA-Public Use
  Company Number: FR-ABBVIE-22K-056-4315219-00

PATIENT
  Age: 2 Year
  Sex: Male

DRUGS (1)
  1. VALPROATE SODIUM [Suspect]
     Active Substance: VALPROATE SODIUM
     Indication: Seizure
     Route: 065

REACTIONS (3)
  - Seizure [Not Recovered/Not Resolved]
  - Accidental overdose [Unknown]
  - Product dispensing error [Unknown]

NARRATIVE: CASE EVENT DATE: 20210221
